FAERS Safety Report 9348164 (Version 1)
Quarter: 2013Q2

REPORT INFORMATION
  Report Type: Spontaneous
  Country: US (occurrence: None)
  Receive Date: 20130612
  Receipt Date: 20130612
  Transmission Date: 20140414
  Serious: No
  Sender: FDA-Public Use
  Company Number: None

PATIENT
  Age: 81 Year
  Sex: Female
  Weight: 72.5 kg

DRUGS (1)
  1. METHOHEXITAL [Suspect]
     Indication: INDUCTION OF ANAESTHESIA
     Dosage: X 2 DOSES
     Route: 042
     Dates: start: 20130603

REACTIONS (1)
  - Drug ineffective [None]
